FAERS Safety Report 6216457-X (Version None)
Quarter: 2009Q2

REPORT INFORMATION
  Report Type: 
  Country: None (occurrence: None)
  Receive Date: 20090605
  Receipt Date: 20090529
  Transmission Date: 20091009
  Serious: Yes (Other)
  Sender: FDA-Public Use
  Company Number: JP-BAYER-200911774BYL

PATIENT
  Age: 37 Year
  Sex: Male

DRUGS (1)
  1. FLUDARA [Suspect]
     Indication: BONE MARROW CONDITIONING REGIMEN
     Route: 042
     Dates: start: 20090110

REACTIONS (1)
  - ACUTE GRAFT VERSUS HOST DISEASE [None]
